FAERS Safety Report 23046440 (Version 3)
Quarter: 2025Q3

REPORT INFORMATION
  Report Type: Spontaneous
  Country: EU (occurrence: EU)
  Receive Date: 20231009
  Receipt Date: 20250725
  Transmission Date: 20251021
  Serious: Yes (Other)
  Sender: PFIZER
  Company Number: EU-SANDOZ-SDZ2023AT031536

PATIENT
  Age: 71 Year
  Sex: Female

DRUGS (3)
  1. RITUXIMAB [Suspect]
     Active Substance: RITUXIMAB
     Dosage: UNK, WEEKLY
     Route: 065
  2. ELTROMBOPAG [Suspect]
     Active Substance: ELTROMBOPAG
     Route: 065
  3. ELTROMBOPAG [Suspect]
     Active Substance: ELTROMBOPAG
     Route: 065
     Dates: end: 202305

REACTIONS (3)
  - Myelodysplastic syndrome [Unknown]
  - Therapy non-responder [Unknown]
  - Gastrointestinal disorder [Unknown]
